FAERS Safety Report 21458306 (Version 8)
Quarter: 2023Q1

REPORT INFORMATION
  Report Type: Spontaneous
  Country: US (occurrence: US)
  Receive Date: 20221014
  Receipt Date: 20230126
  Transmission Date: 20230417
  Serious: No
  Sender: FDA-Public Use
  Company Number: US-PFIZER INC-PV202200082492

PATIENT
  Age: 85 Year
  Sex: Female
  Weight: 86.18 kg

DRUGS (2)
  1. IBRANCE [Suspect]
     Active Substance: PALBOCICLIB
     Indication: Breast cancer female
     Dosage: 125 MG
  2. IBRANCE [Suspect]
     Active Substance: PALBOCICLIB
     Dosage: DAILY DOSE 1-21 EVERY 28 DAYS
     Route: 048

REACTIONS (3)
  - Hypoacusis [Unknown]
  - Illness [Unknown]
  - Inappropriate schedule of product administration [Unknown]
